FAERS Safety Report 5276273-2 (Version None)
Quarter: 2007Q1

REPORT INFORMATION
  Report Type: 
  Country: None (occurrence: None)
  Receive Date: 20070326
  Receipt Date: 20070319
  Transmission Date: 20070707
  Serious: Yes (Hospitalization)
  Sender: FDA-Public Use
  Company Number: BE-PFIZER INC-2007005008

PATIENT
  Sex: Female
  Weight: 75 kg

DRUGS (4)
  1. SILDENAFIL (PAH) [Suspect]
     Indication: PULMONARY HYPERTENSION
     Route: 048
  2. REDUCTIL [Concomitant]
  3. CLEXANE [Concomitant]
     Route: 048
  4. SYNGEL [Concomitant]

REACTIONS (1)
  - CAESAREAN SECTION [None]
